FAERS Safety Report 9653180 (Version 1)
Quarter: 2013Q4

REPORT INFORMATION
  Report Type: Spontaneous
  Country: US (occurrence: US)
  Receive Date: 20131029
  Receipt Date: 20131029
  Transmission Date: 20140711
  Serious: Yes (Hospitalization)
  Sender: FDA-Public Use
  Company Number: US-GLAXOSMITHKLINE-A1047191A

PATIENT
  Sex: Male

DRUGS (4)
  1. PROMACTA [Suspect]
     Indication: CHRONIC HEPATITIS C
     Dosage: 50MG PER DAY
     Route: 048
  2. RIBAVIRIN [Suspect]
     Indication: CHRONIC HEPATITIS C
  3. INCIVEK [Suspect]
     Indication: CHRONIC HEPATITIS C
     Dosage: 375MG UNKNOWN
  4. PEGASYS [Suspect]
     Indication: CHRONIC HEPATITIS C

REACTIONS (1)
  - Drug-induced liver injury [Unknown]
